FAERS Safety Report 4475910-X (Version None)
Quarter: 2004Q4

REPORT INFORMATION
  Report Type: 
  Country: None (occurrence: None)
  Receive Date: 20041012
  Receipt Date: 20040929
  Transmission Date: 20050328
  Serious: Yes (Other)
  Sender: FDA-Public Use
  Company Number: 2004058813

PATIENT
  Age: 55 Year
  Sex: Male

DRUGS (2)
  1. VIAGRA [Suspect]
     Indication: ERECTILE DYSFUNCTION
     Dosage: 50 MG (50 MG, AS NECESSARY),ORAL
     Route: 048
  2. ANTIHYPERTENSIVES (ANTIHYPERTENSIVES) [Suspect]

REACTIONS (9)
  - CONDITION AGGRAVATED [None]
  - DRUG INEFFECTIVE [None]
  - EYE PAIN [None]
  - EYE REDNESS [None]
  - FLUSHING [None]
  - MIGRATION OF IMPLANT [None]
  - PAIN EXACERBATED [None]
  - SURGICAL PROCEDURE REPEATED [None]
  - VITREOUS DETACHMENT [None]
